FAERS Safety Report 6197019-X (Version None)
Quarter: 2009Q2

REPORT INFORMATION
  Report Type: 
  Country: None (occurrence: None)
  Receive Date: 20090520
  Receipt Date: 20090512
  Transmission Date: 20091009
  Serious: Yes (Death)
  Sender: FDA-Public Use
  Company Number: JP-WYE-H09355109

PATIENT
  Sex: Male
  Weight: 55 kg

DRUGS (12)
  1. ANCARON [Suspect]
     Indication: VENTRICULAR FIBRILLATION
     Route: 048
     Dates: start: 20071010, end: 20071110
  2. SHINBIT [Concomitant]
     Indication: VENTRICULAR FIBRILLATION
     Route: 042
     Dates: start: 20071010
  3. LIDOCAINE [Concomitant]
     Indication: VENTRICULAR FIBRILLATION
     Route: 065
     Dates: start: 20071010
  4. DOGMATYL [Concomitant]
     Route: 048
     Dates: start: 20071004, end: 20071110
  5. WARFARIN SODIUM [Concomitant]
     Route: 048
     Dates: start: 20071004, end: 20071110
  6. ARICEPT [Concomitant]
     Route: 048
     Dates: start: 20071004, end: 20071110
  7. LIPITOR [Concomitant]
     Route: 048
     Dates: start: 20071004, end: 20071110
  8. PANALDINE [Concomitant]
     Route: 048
     Dates: start: 20071004, end: 20071110
  9. PURSENNID [Concomitant]
     Route: 048
     Dates: start: 20071004, end: 20071110
  10. SIGMART [Concomitant]
     Route: 048
     Dates: start: 20071004, end: 20071110
  11. ANCARON [Suspect]
     Dosage: 17 ML/HR (CONCENTRATION 1.5 MG/ML)
     Route: 042
     Dates: start: 20071010, end: 20071013
  12. ASPIRIN [Concomitant]
     Route: 048
     Dates: start: 20071004, end: 20071110

REACTIONS (1)
  - DEATH [None]
